FAERS Safety Report 9497202 (Version 2)
Quarter: 2013Q3

REPORT INFORMATION
  Report Type: Spontaneous
  Country: DE (occurrence: DE)
  Receive Date: 20130904
  Receipt Date: 20130904
  Transmission Date: 20140515
  Serious: Yes (Other)
  Sender: FDA-Public Use
  Company Number: DE-UCBSA-054399

PATIENT
  Age: 88 Year
  Sex: Male
  Weight: 72 kg

DRUGS (8)
  1. NEUPRO [Suspect]
     Indication: RESTLESS LEGS SYNDROME
     Dosage: 1 MG/24 HR
     Route: 062
     Dates: start: 20120309, end: 20130116
  2. RESTEX RETARD [Concomitant]
     Indication: RESTLESS LEGS SYNDROME
     Dosage: DOSE: 100/25 IN THE EVENING
     Route: 048
     Dates: start: 2012
  3. TOLPERISONE [Concomitant]
     Dosage: 1X2 PER DAY
     Route: 048
  4. OXAZEPAM [Concomitant]
     Dosage: DOSE: 2.5 MG FOR NIGHT
  5. PANTOZOL [Concomitant]
     Dosage: DOSE: IN MORNING AS NEEDED
  6. BELOC [Concomitant]
     Dosage: DOSE: AS NEEDED
  7. MADOPAR [Concomitant]
     Indication: RESTLESS LEGS SYNDROME
     Dosage: 100/25 // 50/12.5
     Route: 048
     Dates: start: 2012
  8. XARELTA [Concomitant]
     Indication: ATRIAL FIBRILLATION

REACTIONS (12)
  - Arteriovenous fistula [Unknown]
  - Gait disturbance [Unknown]
  - Atrial fibrillation [Unknown]
  - Polyneuropathy [Unknown]
  - Paresis [Unknown]
  - Breathing-related sleep disorder [Unknown]
  - Urinary incontinence [Unknown]
  - Cardiovascular disorder [Recovering/Resolving]
  - Dizziness [Recovering/Resolving]
  - Somnolence [Recovering/Resolving]
  - Skin reaction [Recovered/Resolved]
  - Fall [Unknown]
